FAERS Safety Report 4597055-0 (Version None)
Quarter: 2005Q1

REPORT INFORMATION
  Report Type: 
  Country: None (occurrence: None)
  Receive Date: 20050301
  Receipt Date: 20050215
  Transmission Date: 20050727
  Serious: Yes (Hospitalization)
  Sender: FDA-Public Use
  Company Number: GXKR2005NO00637

PATIENT
  Age: 93 Year
  Sex: Female

DRUGS (3)
  1. ENALAPRIL HCT          (ENALAPRIL, HYDROCHLOROTHIAZIDE) [Suspect]
     Dosage: ORAL
     Route: 048
  2. FUROSEMIDE [Suspect]
  3. BREXIDOL (PIROXICAM) [Concomitant]

REACTIONS (4)
  - BLOOD CREATINE INCREASED [None]
  - CONFUSIONAL STATE [None]
  - DEHYDRATION [None]
  - HAEMATURIA [None]
